FAERS Safety Report 24444016 (Version 2)
Quarter: 2024Q4

REPORT INFORMATION
  Report Type: Report from Study
  Country: US (occurrence: US)
  Receive Date: 20241016
  Receipt Date: 20241017
  Transmission Date: 20250115
  Serious: No
  Sender: ROCHE
  Company Number: US-ROCHE-2293930

PATIENT
  Age: 49 Year
  Sex: Female

DRUGS (3)
  1. RITUXAN [Suspect]
     Active Substance: RITUXIMAB
     Indication: Relapsing multiple sclerosis
     Dosage: STRENGTH: 500 MG/ 50 ML, INFUSE 1000 MG ON DAY 1 AND DAY 15, REPEAT EVERY 4 MONTHS.?DATE OF TREATMEN
     Route: 041
  2. GABAPENTIN [Concomitant]
     Active Substance: GABAPENTIN
  3. ALPRAZOLAM [Concomitant]
     Active Substance: ALPRAZOLAM

REACTIONS (2)
  - Off label use [Unknown]
  - No adverse event [Unknown]
